FAERS Safety Report 9517848 (Version 1)
Quarter: 2013Q1

REPORT INFORMATION
  Report Type: Spontaneous
  Country: US (occurrence: None)
  Receive Date: 20130305
  Receipt Date: 20130305
  Transmission Date: 20140127
  Serious: Yes (Hospitalization, Other)
  Sender: FDA-Public Use
  Company Number: 163-21880-12012031

PATIENT
  Age: 75 Year
  Sex: Male

DRUGS (4)
  1. REVLIMID (LENALIDOMIDE) (25 MILLIGRAM, CAPSULES) [Suspect]
     Indication: NEOPLASM
     Dosage: DAILY DAYS 1-21 EVERY 28 DAYS
     Route: 048
     Dates: start: 20110405
  2. CYTOXAN (CYCLOPHOSPHAMIDE) [Concomitant]
  3. ADRIAMYCIN (DOXORUBICIN) INJ. USP 10MG/5ML [Concomitant]
  4. DECADRON (DEXAMETHASONE) [Concomitant]

REACTIONS (3)
  - White blood cell count decreased [None]
  - Full blood count decreased [None]
  - Fatigue [None]
